FAERS Safety Report 5141441-7 (Version None)
Quarter: 2006Q4

REPORT INFORMATION
  Report Type: 
  Country: None (occurrence: None)
  Receive Date: 20061101
  Receipt Date: 20061023
  Transmission Date: 20070319
  Serious: Yes (Death)
  Sender: FDA-Public Use
  Company Number: JP-JNJFOC-20061003754

PATIENT
  Sex: Female

DRUGS (4)
  1. ITRIZOLE [Suspect]
     Indication: ORAL CANDIDIASIS
     Route: 048
     Dates: start: 20060915, end: 20060917
  2. ADONA [Concomitant]
     Route: 065
  3. CINAL [Concomitant]
     Route: 048
  4. CHEMOTHERAPY [Concomitant]
     Route: 065

REACTIONS (2)
  - DEATH [None]
  - MULTI-ORGAN FAILURE [None]
